FAERS Safety Report 8265176-7 (Version None)
Quarter: 2012Q2

REPORT INFORMATION
  Report Type: 
  Country: None (occurrence: None)
  Receive Date: 20120403
  Receipt Date: 20120113
  Transmission Date: 20120825
  Serious: Yes (Other)
  Sender: FDA-Public Use
  Company Number: 2011SP058356

PATIENT
  Sex: Female

DRUGS (5)
  1. GANIRELIX ACETATE INJECTION [Suspect]
     Indication: ASSISTED FERTILISATION
     Dates: start: 20111214, end: 20111214
  2. FLUTICASONE PROPIONATE/SALMETEROL [Concomitant]
  3. FOLIC ACID [Concomitant]
  4. LEVOTHYROXINE SODIUM [Concomitant]
  5. MENOGON [Concomitant]

REACTIONS (2)
  - ANAPHYLACTIC SHOCK [None]
  - SKIN IRRITATION [None]
